FAERS Safety Report 4353163-0 (Version None)
Quarter: 2004Q2

REPORT INFORMATION
  Report Type: 
  Country: None (occurrence: None)
  Receive Date: 20040503
  Receipt Date: 20040503
  Transmission Date: 20050107
  Serious: No
  Sender: FDA-Public Use
  Company Number: None

PATIENT
  Age: 50 Year
  Sex: Male
  Weight: 62.7 kg

DRUGS (2)
  1. LINEZOLID [Suspect]
     Indication: CELLULITIS
     Dosage: 600MG Q 12 PO
     Route: 048
     Dates: start: 20031218, end: 20031222
  2. LINEZOLID [Suspect]
     Indication: STAPHYLOCOCCAL INFECTION
     Dosage: 600MG Q 12 PO
     Route: 048
     Dates: start: 20031218, end: 20031222

REACTIONS (1)
  - RASH [None]
